FAERS Safety Report 7145610-6 (Version None)
Quarter: 2010Q4

REPORT INFORMATION
  Report Type: 
  Country: None (occurrence: None)
  Receive Date: 20101208
  Receipt Date: 20100616
  Transmission Date: 20110411
  Serious: No
  Sender: FDA-Public Use
  Company Number: US-ABBOTT-10P-163-0652842-00

PATIENT
  Sex: Female

DRUGS (4)
  1. ERYTHROMYCIN BASE [Suspect]
     Indication: IMPAIRED GASTRIC EMPTYING
     Dosage: EVERY 6 HOURS
     Dates: start: 20100523
  2. UNKNOWN MULTIPLE MEDICATIONS [Concomitant]
     Indication: FIBROMYALGIA
  3. UNKNOWN MULTIPLE MEDICATIONS [Concomitant]
     Indication: OSTEOPENIA
  4. UNKNOWN MULTIPLE MEDICATIONS [Concomitant]
     Indication: SARCOIDOSIS

REACTIONS (1)
  - INSOMNIA [None]
